FAERS Safety Report 7425640-7 (Version None)
Quarter: 2011Q2

REPORT INFORMATION
  Report Type: 
  Country: None (occurrence: None)
  Receive Date: 20110412
  Receipt Date: 20110330
  Transmission Date: 20111010
  Serious: Yes (Other)
  Sender: FDA-Public Use
  Company Number: 1000017651

PATIENT
  Age: 56 Year
  Sex: Female

DRUGS (7)
  1. ASA (ACETYLSALICYLIC ACID) (ACETYLSALICYLIC ACID) [Concomitant]
  2. FOSINOPRIL/HYDRCHLOROTHIAZIDE (FOSINOPRIL, HYDRCHLOROTHIAZIDE) (FOSINO [Concomitant]
  3. AVALIDE [Suspect]
     Indication: HYPERTENSION
     Dosage: 150/12.5 MG (1 DOSAGE FORMS,1 IN 1 D),ORAL
     Route: 048
     Dates: start: 20100406, end: 20100419
  4. DESLORATADINE [Concomitant]
  5. PUFFERS (INHALANT NOS) (INHALANT NOS) [Concomitant]
  6. ZANTAC (RANITIDINE) (RANITIDINE) [Concomitant]
  7. CELEXA [Suspect]
     Indication: HYPERTENSION
     Dosage: ORAL
     Route: 048
     Dates: start: 20100301

REACTIONS (3)
  - CONTUSION [None]
  - PYREXIA [None]
  - RASH [None]
